FAERS Safety Report 22959885 (Version 2)
Quarter: 2024Q2

REPORT INFORMATION
  Report Type: Spontaneous
  Country: CA (occurrence: CA)
  Receive Date: 20230920
  Receipt Date: 20240409
  Transmission Date: 20240716
  Serious: Yes (Disabling, Other)
  Sender: FDA-Public Use
  Company Number: CA-LUNDBECK-DKLU3067670

PATIENT
  Age: 53 Year
  Sex: Female

DRUGS (2)
  1. VYEPTI [Suspect]
     Active Substance: EPTINEZUMAB-JJMR
     Indication: Migraine
     Dosage: 100 MG ONCE
     Route: 041
     Dates: start: 20221209, end: 20221209
  2. ETHINYL ESTRADIOL\LEVONORGESTREL [Concomitant]
     Active Substance: ETHINYL ESTRADIOL\LEVONORGESTREL
     Indication: Contraception
     Route: 065

REACTIONS (8)
  - Bedridden [Recovering/Resolving]
  - Cluster headache [Recovering/Resolving]
  - Condition aggravated [Recovering/Resolving]
  - Gastrointestinal pain [Recovering/Resolving]
  - Gastrooesophageal reflux disease [Recovering/Resolving]
  - Migraine [Recovering/Resolving]
  - Occipital neuralgia [Recovering/Resolving]
  - Vertigo [Recovering/Resolving]

NARRATIVE: CASE EVENT DATE: 20221210
